FAERS Safety Report 4382139-2 (Version None)
Quarter: 2004Q2

REPORT INFORMATION
  Report Type: 
  Country: None (occurrence: None)
  Receive Date: 20040617
  Receipt Date: 20030903
  Transmission Date: 20050107
  Serious: Yes (Life-Threatening, Other)
  Sender: FDA-Public Use
  Company Number: 03-242-0151

PATIENT
  Age: 52 Year
  Sex: Male

DRUGS (5)
  1. LEUCOVORIN CALCIUM FOR INJ, 200 MG, BEN VENUE LABS [Suspect]
     Indication: COLON CANCER METASTATIC
     Dosage: 400 MG IV OVER 2 HOURS
     Route: 042
     Dates: start: 20030902
  2. OXALIPLATIN [Suspect]
     Indication: COLON CANCER METASTATIC
     Dosage: 175 MG IV OVER 2 HOURS
     Dates: start: 20030902
  3. LORAZEPAM [Concomitant]
  4. ZOFRAN [Concomitant]
  5. DEXAMETHASONE TAB [Concomitant]

REACTIONS (7)
  - AGITATION [None]
  - ANAPHYLACTIC REACTION [None]
  - COUGH [None]
  - FLUSHING [None]
  - HYPOTENSION [None]
  - PRURITUS [None]
  - TACHYCARDIA [None]
